FAERS Safety Report 4980695-4 (Version None)
Quarter: 2006Q2

REPORT INFORMATION
  Report Type: 
  Country: None (occurrence: None)
  Receive Date: 20060424
  Receipt Date: 20051209
  Transmission Date: 20061013
  Serious: Yes (Hospitalization)
  Sender: FDA-Public Use
  Company Number: US-MERCK-0512USA01705

PATIENT
  Age: 51 Year
  Sex: Male
  Weight: 95 kg

DRUGS (2)
  1. VIOXX [Suspect]
     Indication: PSORIATIC ARTHROPATHY
     Route: 048
     Dates: start: 20010101, end: 20030101
  2. ASPIRIN [Concomitant]
     Route: 048

REACTIONS (11)
  - CEREBELLAR INFARCTION [None]
  - EMOTIONAL DISORDER [None]
  - HYPERLIPIDAEMIA [None]
  - HYPERTENSION [None]
  - INSOMNIA [None]
  - LIBIDO DECREASED [None]
  - MYALGIA [None]
  - RHEUMATOID ARTHRITIS [None]
  - RHINITIS [None]
  - SKIN PAPILLOMA [None]
  - SLEEP APNOEA SYNDROME [None]
